FAERS Safety Report 23672741 (Version 7)
Quarter: 2024Q2

REPORT INFORMATION
  Report Type: Spontaneous
  Country: US (occurrence: US)
  Receive Date: 20240326
  Receipt Date: 20240521
  Transmission Date: 20240716
  Serious: No
  Sender: FDA-Public Use
  Company Number: US-PFIZER INC-202400064017

PATIENT
  Age: 13 Year
  Sex: Female

DRUGS (3)
  1. GENOTROPIN [Suspect]
     Active Substance: SOMATROPIN
     Indication: Growth hormone deficiency
     Dosage: EVERY SINGLE DAY, ALTERNATES BETWEEN 1.4MG ONE DAY AND 1.6MG OTHER DAY, FOR 1.5MG DOSE.
     Dates: start: 20240301
  2. GENOTROPIN [Suspect]
     Active Substance: SOMATROPIN
     Dosage: EVERY SINGLE DAY, ALTERNATES BETWEEN 1.4MG ONE DAY AND 1.6MG OTHER DAY, FOR 1.5MG DOSE.
  3. GENOTROPIN [Suspect]
     Active Substance: SOMATROPIN
     Dosage: UNK

REACTIONS (5)
  - Drug dose omission by device [Unknown]
  - Device use issue [Unknown]
  - Poor quality device used [Unknown]
  - Device breakage [Unknown]
  - Device leakage [Unknown]
